FAERS Safety Report 9342611 (Version 1)
Quarter: 2013Q2

REPORT INFORMATION
  Report Type: Spontaneous
  Country: US (occurrence: None)
  Receive Date: 20130607
  Receipt Date: 20130607
  Transmission Date: 20140414
  Serious: Yes (Death, Hospitalization)
  Sender: FDA-Public Use
  Company Number: IPC201305-000210

PATIENT
  Age: 68 Year
  Sex: Male

DRUGS (13)
  1. FUROSEMIDE [Suspect]
     Route: 042
  2. METOPROLOL TARTRATE [Suspect]
     Dosage: 300 MG, 150 MG, TWICE DAILY
  3. GENTAMICIN [Suspect]
  4. ASPIRIN [Suspect]
  5. HEPARIN [Suspect]
     Route: 042
  6. TAMSULOSIN [Suspect]
  7. LISINOPRIL [Suspect]
  8. NITROGLYCERIN [Suspect]
     Route: 062
  9. SIMVASTATIN [Suspect]
  10. MORPHINE [Suspect]
  11. OMEPRAZOLE [Suspect]
  12. AMPICILLIN/SULBACTAM [Suspect]
  13. POTASSIUM CHLORIDE [Suspect]

REACTIONS (15)
  - Metabolic alkalosis [None]
  - Respiratory alkalosis [None]
  - Hyperaldosteronism [None]
  - Pneumonia [None]
  - Agitation [None]
  - Delirium [None]
  - Hypokalaemia [None]
  - Cardiac failure congestive [None]
  - Condition aggravated [None]
  - Atrial fibrillation [None]
  - Pulmonary oedema [None]
  - Aortic valve incompetence [None]
  - Mitral valve incompetence [None]
  - Blood creatinine increased [None]
  - Blood sodium increased [None]
